FAERS Safety Report 15670603 (Version 1)
Quarter: 2018Q4

REPORT INFORMATION
  Report Type: Spontaneous
  Country: US (occurrence: US)
  Receive Date: 20181119
  Receipt Date: 20181119
  Transmission Date: 20190205
  Serious: Yes (Other)
  Sender: FDA-Public Use
  Company Number: None

PATIENT
  Age: 33 Year
  Sex: Female

DRUGS (1)
  1. TENOFOVIR DF TAB 300MG [Suspect]
     Active Substance: TENOFOVIR DISOPROXIL FUMARATE
     Indication: CHRONIC HEPATITIS B
     Dates: start: 201805

REACTIONS (3)
  - Vomiting [None]
  - Ankle fracture [None]
  - Impaired healing [None]

NARRATIVE: CASE EVENT DATE: 20181117
